FAERS Safety Report 6840048-0 (Version None)
Quarter: 2010Q3

REPORT INFORMATION
  Report Type: 
  Country: None (occurrence: None)
  Receive Date: 20100714
  Receipt Date: 20100630
  Transmission Date: 20110219
  Serious: Yes (Other)
  Sender: FDA-Public Use
  Company Number: JP-ROCHE-713961

PATIENT
  Age: 46 Year
  Sex: Female

DRUGS (5)
  1. CELLCEPT [Suspect]
     Indication: PROPHYLAXIS AGAINST TRANSPLANT REJECTION
     Route: 048
  2. PROGRAF [Concomitant]
     Route: 041
  3. SIMULECT [Concomitant]
     Route: 041
  4. METHYLPREDNISOLONE SODIUM SUCCINATE [Concomitant]
     Route: 041
  5. PIPERACILLIN SODIUM [Concomitant]
     Dosage: NOTE: DOSAGE IS UNCERTAIN.
     Route: 041
     Dates: start: 20091210, end: 20091217

REACTIONS (3)
  - CYTOMEGALOVIRUS TEST POSITIVE [None]
  - DISSEMINATED INTRAVASCULAR COAGULATION [None]
  - HAEMOLYTIC ANAEMIA [None]
